FAERS Safety Report 26075233 (Version 1)
Quarter: 2025Q4

REPORT INFORMATION
  Report Type: Spontaneous
  Country: US (occurrence: US)
  Receive Date: 20251121
  Receipt Date: 20251121
  Transmission Date: 20260118
  Serious: No
  Sender: TAKEDA
  Company Number: US-TAKEDA-2025TUS104428

PATIENT
  Age: 63 Year
  Sex: Female

DRUGS (1)
  1. TRINTELLIX [Suspect]
     Active Substance: VORTIOXETINE HYDROBROMIDE
     Indication: Product used for unknown indication
     Dosage: UNK, QD

REACTIONS (2)
  - No adverse event [Unknown]
  - Product use issue [Unknown]
